FAERS Safety Report 25307154 (Version 2)
Quarter: 2025Q2

REPORT INFORMATION
  Report Type: Spontaneous
  Country: US (occurrence: US)
  Receive Date: 20250513
  Receipt Date: 20250522
  Transmission Date: 20250717
  Serious: Yes (Other)
  Sender: ALVOGEN
  Company Number: US-ALVOGEN-2024095894

PATIENT
  Sex: Female

DRUGS (2)
  1. TERIPARATIDE [Suspect]
     Active Substance: TERIPARATIDE
     Indication: Osteoarthritis
     Dosage: STRENGTH: 250 MCG/ML?DAILY
     Route: 058
     Dates: start: 20241008, end: 2025
  2. PROLIA [Concomitant]
     Active Substance: DENOSUMAB
     Indication: Osteoarthritis
     Dates: start: 2025

REACTIONS (6)
  - Myocardial infarction [Recovered/Resolved]
  - Hypercalcaemia [Recovered/Resolved]
  - Blood pressure increased [Recovered/Resolved]
  - Bone pain [Unknown]
  - Pain [Unknown]
  - Off label use [Unknown]

NARRATIVE: CASE EVENT DATE: 20240101
